FAERS Safety Report 9958175 (Version 1)
Quarter: 2014Q1

REPORT INFORMATION
  Report Type: Report from Study
  Country: US (occurrence: US)
  Receive Date: 20140304
  Receipt Date: 20140304
  Transmission Date: 20141002
  Serious: No
  Sender: FDA-Public Use
  Company Number: US-ABBVIE-13P-163-1093366-00

PATIENT
  Age: 72 Year
  Sex: Female
  Weight: 77.18 kg

DRUGS (6)
  1. HUMIRA [Suspect]
     Indication: CROHN^S DISEASE
     Dates: start: 2012
  2. LIALDA [Concomitant]
     Indication: CROHN^S DISEASE
  3. PREMARIN [Concomitant]
     Indication: MENOPAUSE
  4. HYZAAR [Concomitant]
     Indication: HYPERTENSION
  5. LORAZEPAM [Concomitant]
     Indication: ANXIETY
  6. LOPID [Concomitant]
     Indication: BLOOD CHOLESTEROL INCREASED

REACTIONS (1)
  - Ligament sprain [Recovering/Resolving]
